FAERS Safety Report 5507412-3 (Version None)
Quarter: 2007Q4

REPORT INFORMATION
  Report Type: 
  Country: None (occurrence: None)
  Receive Date: 20071106
  Receipt Date: 20071022
  Transmission Date: 20080405
  Serious: Yes (Death, Hospitalization)
  Sender: FDA-Public Use
  Company Number: ES-AMGEN-UK239336

PATIENT
  Sex: Female

DRUGS (9)
  1. ARANESP [Suspect]
     Indication: MYELODYSPLASTIC SYNDROME
     Route: 058
     Dates: start: 20070725, end: 20070806
  2. BENADON [Concomitant]
  3. INDAPAMIDE [Concomitant]
  4. CALCIUM-SANDOZ [Concomitant]
  5. RABEPRAZOLE SODIUM [Concomitant]
  6. VOLTAREN [Concomitant]
  7. ALPRAZOLAM [Concomitant]
  8. DIURETICS [Concomitant]
  9. UNSPECIFIED ANTIBIOTIC [Concomitant]

REACTIONS (2)
  - INTRACRANIAL VENOUS SINUS THROMBOSIS [None]
  - TONSILLITIS [None]
